FAERS Safety Report 17136833 (Version 1)
Quarter: 2019Q4

REPORT INFORMATION
  Report Type: Spontaneous
  Country: DE (occurrence: DE)
  Receive Date: 20191210
  Receipt Date: 20191210
  Transmission Date: 20200122
  Serious: Yes (Other)
  Sender: FDA-Public Use
  Company Number: DE-US-PROVELL PHARMACEUTICALS LLC-E2B_90071983

PATIENT
  Sex: Female
  Weight: 46 kg

DRUGS (1)
  1. EUTHYROX NF [Suspect]
     Active Substance: LEVOTHYROXINE SODIUM
     Indication: POST PROCEDURAL HYPOTHYROIDISM
     Route: 048
     Dates: end: 20191025

REACTIONS (9)
  - Abdominal discomfort [Not Recovered/Not Resolved]
  - Nausea [Not Recovered/Not Resolved]
  - Decreased appetite [Recovering/Resolving]
  - Weight decreased [Unknown]
  - Diarrhoea [Recovering/Resolving]
  - Palpitations [Unknown]
  - Tachycardia [Unknown]
  - Fatigue [Unknown]
  - Night sweats [Not Recovered/Not Resolved]
